FAERS Safety Report 4712458-9 (Version None)
Quarter: 2005Q3

REPORT INFORMATION
  Report Type: 
  Country: None (occurrence: None)
  Receive Date: 20050711
  Receipt Date: 20040422
  Transmission Date: 20060218
  Serious: Yes (Death)
  Sender: FDA-Public Use
  Company Number: 0410005

PATIENT
  Age: 7 Year
  Sex: Male
  Weight: 0.4536 kg

DRUGS (1)
  1. ORFADIN [Suspect]
     Indication: NEUROBLASTOMA
     Dosage: 6 MILLIGRAM MG/KG/DAY ORAL
     Route: 048
     Dates: start: 20020618, end: 20040302

REACTIONS (4)
  - CONJUNCTIVITIS [None]
  - HEPATIC FAILURE [None]
  - MALIGNANT NEOPLASM PROGRESSION [None]
  - METASTASES TO LIVER [None]
